FAERS Safety Report 14636384 (Version 1)
Quarter: 2018Q1

REPORT INFORMATION
  Report Type: Spontaneous
  Country: US (occurrence: US)
  Receive Date: 20180313
  Receipt Date: 20180313
  Transmission Date: 20180509
  Serious: No
  Sender: FDA-Public Use
  Company Number: None

PATIENT
  Age: 92 Year
  Sex: Female
  Weight: 57.9 kg

DRUGS (1)
  1. ALBUTEROL/IPRATROPIUM [Suspect]
     Active Substance: ALBUTEROL\IPRATROPIUM
     Indication: CARDIAC OPERATION
     Route: 055
     Dates: start: 20171227, end: 20171227

REACTIONS (2)
  - Tachycardia [None]
  - Angina pectoris [None]

NARRATIVE: CASE EVENT DATE: 20171227
